FAERS Safety Report 5314855-X (Version None)
Quarter: 2007Q2

REPORT INFORMATION
  Report Type: 
  Country: None (occurrence: None)
  Receive Date: 20070502
  Receipt Date: 20070426
  Transmission Date: 20071010
  Serious: Yes (Congenital Anomaly, Other)
  Sender: FDA-Public Use
  Company Number: GB-BRISTOL-MYERS SQUIBB COMPANY-13765631

PATIENT
  Sex: Female

DRUGS (1)
  1. EFAVIRENZ [Suspect]

REACTIONS (3)
  - ABORTION INDUCED [None]
  - CONGENITAL ANOMALY [None]
  - PREGNANCY [None]
